FAERS Safety Report 12976284 (Version 1)
Quarter: 2016Q4

REPORT INFORMATION
  Report Type: Spontaneous
  Country: IT (occurrence: IT)
  Receive Date: 20161126
  Receipt Date: 20161126
  Transmission Date: 20170207
  Serious: Yes (Other)
  Sender: FDA-Public Use
  Company Number: IT-BAXTER-2016BAX059337

PATIENT
  Age: 32 Year
  Sex: Female
  Weight: 56 kg

DRUGS (4)
  1. SODIO CLORURO 0,9% BAXTER [Suspect]
     Active Substance: SODIUM CHLORIDE
     Indication: MEDICATION DILUTION
     Dosage: CYCLICAL
     Route: 042
     Dates: start: 20160914, end: 20161026
  2. 5-FLUOROURACIL [Suspect]
     Active Substance: FLUOROURACIL
     Indication: BREAST CANCER METASTATIC
     Dosage: CYCLICAL
     Route: 042
     Dates: start: 20160914, end: 20161026
  3. ENDOXAN BAXTER [Suspect]
     Active Substance: CYCLOPHOSPHAMIDE
     Indication: BREAST CANCER METASTATIC
     Dosage: CYCLICAL DOSE ONCE EVERY 21 DAYS
     Route: 042
     Dates: start: 20160914, end: 20161026
  4. EPIRUBICIN TEVA [Suspect]
     Active Substance: EPIRUBICIN
     Indication: BREAST CANCER METASTATIC
     Dosage: CYCLICAL
     Route: 042

REACTIONS (1)
  - Neutropenia [Recovered/Resolved]

NARRATIVE: CASE EVENT DATE: 20161104
